FAERS Safety Report 23243213 (Version 1)
Quarter: 2023Q4

REPORT INFORMATION
  Report Type: Report from Study
  Country: US (occurrence: US)
  Receive Date: 20231130
  Receipt Date: 20231130
  Transmission Date: 20240110
  Serious: Yes (Other)
  Sender: FDA-Public Use
  Company Number: US-ALXN-A202310419AA

PATIENT
  Age: 69 Year
  Sex: Female

DRUGS (1)
  1. STRENSIQ [Suspect]
     Active Substance: ASFOTASE ALFA
     Indication: Hypophosphatasia
     Dosage: UNK
     Route: 065

REACTIONS (9)
  - Cataract [Unknown]
  - Bone density decreased [Unknown]
  - Osteitis [Unknown]
  - Hepatic mass [Unknown]
  - Adrenomegaly [Unknown]
  - Bone deformity [Unknown]
  - Albumin globulin ratio increased [Unknown]
  - Hepatic calcification [Unknown]
  - Injection site reaction [Unknown]

NARRATIVE: CASE EVENT DATE: 20230327
